FAERS Safety Report 6111277-9 (Version None)
Quarter: 2009Q1

REPORT INFORMATION
  Report Type: 
  Country: None (occurrence: None)
  Receive Date: 20090309
  Receipt Date: 20090309
  Transmission Date: 20090719
  Serious: Yes (Hospitalization)
  Sender: FDA-Public Use
  Company Number: None

PATIENT
  Sex: Male
  Weight: 3.8 kg

DRUGS (1)
  1. ERYTHROMYCIN N/A N/A [Suspect]
     Indication: EYE INFECTION CHLAMYDIAL
     Dosage: N/A EVERY SIX HOURS PO
     Route: 048
     Dates: start: 20090222, end: 20090226

REACTIONS (1)
  - PYLORIC STENOSIS [None]
